FAERS Safety Report 16314420 (Version 1)
Quarter: 2019Q2

REPORT INFORMATION
  Report Type: Spontaneous
  Country: JP (occurrence: JP)
  Receive Date: 20190515
  Receipt Date: 20190515
  Transmission Date: 20190711
  Serious: Yes (Hospitalization)
  Sender: FDA-Public Use
  Company Number: JP-TEVA-2019-JP-1049535

PATIENT
  Age: 37 Year
  Sex: Female

DRUGS (1)
  1. RABEPRAZOLE [Suspect]
     Active Substance: RABEPRAZOLE
     Indication: GASTROOESOPHAGEAL REFLUX DISEASE
     Dosage: 10 MILLIGRAM DAILY;
     Route: 065

REACTIONS (4)
  - Thrombosis [Recovering/Resolving]
  - Melaena [Recovering/Resolving]
  - Gastric polyps [Recovering/Resolving]
  - Haematemesis [Recovered/Resolved]
